FAERS Safety Report 7642216-7 (Version None)
Quarter: 2011Q3

REPORT INFORMATION
  Report Type: 
  Country: None (occurrence: None)
  Receive Date: 20110728
  Receipt Date: 20110718
  Transmission Date: 20111222
  Serious: Yes (Hospitalization, Other)
  Sender: FDA-Public Use
  Company Number: PHHY2010US39948

PATIENT
  Sex: Male
  Weight: 107.8 kg

DRUGS (12)
  1. NEORAL [Suspect]
     Indication: LIVER TRANSPLANT
     Dosage: 225 MG, (125 MORNING, 100 EVENING)
     Route: 048
  2. CIPROFLOXACIN HCL [Concomitant]
     Dosage: UNK UKN, UNK
  3. IODINE [Concomitant]
     Dosage: UNK UKN, UNK
  4. LISINOPRIL [Concomitant]
     Dosage: 20 MG, UNK
     Route: 048
  5. NEORAL [Suspect]
     Dosage: 100 MG, BID
     Route: 048
  6. CELLCEPT [Suspect]
     Dosage: 500 MG, BID
     Route: 048
  7. LANTUS [Concomitant]
     Dosage: 33 UKN, UNK
     Route: 058
  8. CELLCEPT [Suspect]
     Indication: LIVER TRANSPLANT
     Dosage: 1000 MG, BID
     Route: 048
  9. LISINOPRIL AND HYDROCHLOROTHIAZIDE [Concomitant]
     Dosage: 1 DF, UNK
     Route: 048
  10. REBETOL [Concomitant]
     Dosage: UNK UKN, UNK
  11. COREG [Concomitant]
     Dosage: 12.5 MG, BID
     Route: 048
  12. COLECALCIFEROL [Concomitant]
     Dosage: 2000 IU, UNK
     Route: 048

REACTIONS (20)
  - MYOCARDIAL INFARCTION [None]
  - OBESITY [None]
  - DIABETIC NEPHROPATHY [None]
  - ASPARTATE AMINOTRANSFERASE INCREASED [None]
  - PROTEINURIA [None]
  - VIRAL LOAD INCREASED [None]
  - BLOOD BILIRUBIN INCREASED [None]
  - HEPATIC ENZYME INCREASED [None]
  - NEPHROPATHY TOXIC [None]
  - FATIGUE [None]
  - TYPE 2 DIABETES MELLITUS [None]
  - HYPERPARATHYROIDISM SECONDARY [None]
  - ALANINE AMINOTRANSFERASE INCREASED [None]
  - RENAL FAILURE CHRONIC [None]
  - BLOOD CREATININE INCREASED [None]
  - BLOOD UREA INCREASED [None]
  - GAMMA-GLUTAMYLTRANSFERASE INCREASED [None]
  - HEPATITIS C [None]
  - HYPERTENSION [None]
  - MALAISE [None]
